FAERS Safety Report 21316031 (Version 6)
Quarter: 2022Q4

REPORT INFORMATION
  Report Type: Spontaneous
  Country: US (occurrence: US)
  Receive Date: 20220910
  Receipt Date: 20221221
  Transmission Date: 20230113
  Serious: No
  Sender: FDA-Public Use
  Company Number: US-GLAXOSMITHKLINE-US2022129881

PATIENT
  Age: 55 Year
  Sex: Female

DRUGS (3)
  1. ZEJULA [Suspect]
     Active Substance: NIRAPARIB
     Indication: Ovarian cancer
     Dosage: 100 MG, QD
     Dates: start: 20220822
  2. ZEJULA [Suspect]
     Active Substance: NIRAPARIB
     Dosage: 100 MG, QD
     Route: 048
  3. ZEJULA [Suspect]
     Active Substance: NIRAPARIB
     Dosage: 100 MG, QD

REACTIONS (32)
  - Constipation [Unknown]
  - Dry mouth [Unknown]
  - Peripheral swelling [Unknown]
  - Stress [Unknown]
  - Back pain [Unknown]
  - Pain in extremity [Unknown]
  - White blood cell count decreased [Not Recovered/Not Resolved]
  - Haemoglobin decreased [Not Recovered/Not Resolved]
  - Haematocrit decreased [Unknown]
  - Mean cell volume decreased [Unknown]
  - Mean cell haemoglobin decreased [Unknown]
  - Red cell distribution width increased [Unknown]
  - Thirst [Unknown]
  - Fatigue [Not Recovered/Not Resolved]
  - Heart rate increased [Not Recovered/Not Resolved]
  - Secretion discharge [Unknown]
  - Cough [Unknown]
  - Hepatic enzyme abnormal [Recovered/Resolved]
  - Somnolence [Unknown]
  - Memory impairment [Unknown]
  - Dyspnoea [Unknown]
  - Feeling hot [Unknown]
  - Hyperhidrosis [Unknown]
  - Asthenia [Unknown]
  - Dizziness [Unknown]
  - Red blood cell count decreased [Unknown]
  - Amnesia [Unknown]
  - Red cell distribution width decreased [Unknown]
  - Hypotension [Unknown]
  - Balance disorder [Unknown]
  - Product dose omission issue [Unknown]
  - Off label use [Unknown]

NARRATIVE: CASE EVENT DATE: 20220822
